FAERS Safety Report 8090237-5 (Version None)
Quarter: 2012Q1

REPORT INFORMATION
  Report Type: 
  Country: None (occurrence: None)
  Receive Date: 20120129
  Receipt Date: 20111118
  Transmission Date: 20120608
  Serious: No
  Sender: FDA-Public Use
  Company Number: US-ABBOTT-11P-163-0872457-00

PATIENT
  Age: 49 Year
  Sex: Female

DRUGS (21)
  1. CELEBREX [Concomitant]
     Indication: FIBROMYALGIA
  2. CYMBALTA [Concomitant]
     Indication: DEPRESSION
  3. KLONOPIN [Concomitant]
     Indication: PANIC ATTACK
  4. EUFLEXXA [Concomitant]
     Indication: JOINT SWELLING
     Dosage: PER WEEK FOR 3 WEEKS, EVERY 6 M, KNEE
     Route: 050
  5. HUMIRA [Suspect]
     Indication: RHEUMATOID ARTHRITIS
  6. SYNTHROID [Concomitant]
     Indication: HYPOTHYROIDISM
  7. VOLTAREN [Concomitant]
     Indication: PAIN
     Dosage: GEL, AS NEEDED
  8. ENALAPRIL [Concomitant]
     Indication: HYPERTENSION
  9. ZIPSOR [Concomitant]
     Indication: PAIN
     Dosage: 4 IN 1 D, AS NEEDED,IN PLACE OF CELEBREX
  10. MORPHINE SULFATE [Concomitant]
     Indication: PAIN
     Dosage: FOUR PER DAY, ER
  11. SAVELLA [Concomitant]
     Indication: RHEUMATOID ARTHRITIS
  12. LIDODERM [Concomitant]
     Indication: PAIN
     Dosage: PATCHES, AS NEEDED
  13. HYDROCHLOROTHIAZIDE [Concomitant]
     Indication: HYPERTENSION
  14. LOVASTATIN [Concomitant]
     Indication: BLOOD CHOLESTEROL INCREASED
  15. ASTEPRO [Concomitant]
     Indication: HYPERSENSITIVITY
     Dosage: ONE SPRAY TWICE DAILY
  16. ZYRTEC [Concomitant]
     Indication: HYPERSENSITIVITY
  17. FLEXERIL [Concomitant]
     Indication: PAIN
  18. FLUTICASONE PROPIONATE [Concomitant]
     Indication: HYPERSENSITIVITY
  19. NEURONTIN [Concomitant]
     Indication: NEURALGIA
  20. ESTROGEL [Concomitant]
     Indication: MENOPAUSE
  21. NEXIUM [Concomitant]
     Indication: GASTROOESOPHAGEAL REFLUX DISEASE

REACTIONS (7)
  - ARTHRALGIA [None]
  - JOINT SWELLING [None]
  - INFLUENZA [None]
  - COUGH [None]
  - ERYTHEMA [None]
  - PYREXIA [None]
  - CHILLS [None]
